FAERS Safety Report 21677315 (Version 2)
Quarter: 2022Q4

REPORT INFORMATION
  Report Type: Spontaneous
  Country: PT (occurrence: PT)
  Receive Date: 20221203
  Receipt Date: 20221210
  Transmission Date: 20230113
  Serious: Yes (Hospitalization, Other)
  Sender: FDA-Public Use
  Company Number: PT-RECORDATI-2022005795

PATIENT
  Age: 65 Year
  Sex: Male

DRUGS (1)
  1. ALENDRONIC ACID [Suspect]
     Active Substance: ALENDRONIC ACID
     Indication: Osteoporosis
     Dosage: 70 MILLIGRAM, EVERY WEEK (70 MILLIGRAM, QW)
     Route: 065

REACTIONS (3)
  - Atypical femur fracture [Recovered/Resolved]
  - Pain [Recovered/Resolved]
  - Off label use [Recovered/Resolved]
